APPROVED DRUG PRODUCT: METHAZOLAMIDE
Active Ingredient: METHAZOLAMIDE
Strength: 50MG
Dosage Form/Route: TABLET;ORAL
Application: A215615 | Product #002 | TE Code: AB
Applicant: TAGI PHARMA INC
Approved: Oct 18, 2022 | RLD: No | RS: No | Type: RX